FAERS Safety Report 11750348 (Version 3)
Quarter: 2016Q2

REPORT INFORMATION
  Report Type: Spontaneous
  Country: BR (occurrence: BR)
  Receive Date: 20151118
  Receipt Date: 20160624
  Transmission Date: 20160815
  Serious: Yes (Other)
  Sender: FDA-Public Use
  Company Number: BR-JNJFOC-20151116720

PATIENT
  Sex: Female
  Weight: 70 kg

DRUGS (3)
  1. SIMPONI [Suspect]
     Active Substance: GOLIMUMAB
     Indication: RHEUMATOID ARTHRITIS
     Route: 058
     Dates: start: 20131104, end: 201602
  2. METHOTREXATE [Concomitant]
     Active Substance: METHOTREXATE
     Route: 065
  3. VITAMIN D [Concomitant]
     Active Substance: CHOLECALCIFEROL
     Route: 065

REACTIONS (11)
  - Herpes virus infection [Unknown]
  - Exostosis [Unknown]
  - Arthralgia [Unknown]
  - Neurological infection [Recovering/Resolving]
  - Hypersensitivity [Unknown]
  - Cough [Unknown]
  - Depressed mood [Unknown]
  - Sepsis [Unknown]
  - Malaise [Unknown]
  - Tooth infection [Recovering/Resolving]
  - Fatigue [Unknown]
